FAERS Safety Report 4952109-1 (Version None)
Quarter: 2006Q1

REPORT INFORMATION
  Report Type: 
  Country: None (occurrence: None)
  Receive Date: 20060322
  Receipt Date: 20060322
  Transmission Date: 20060701
  Serious: Yes (Hospitalization, Other)
  Sender: FDA-Public Use
  Company Number: None

PATIENT
  Sex: Female
  Weight: 120 kg

DRUGS (3)
  1. FLUOROURACIL [Suspect]
     Indication: BREAST CANCER
     Dosage: 1100 MG
     Dates: start: 20060213
  2. CYCLOPHOSPHAMIDE [Suspect]
     Dosage: 1100 MG
     Dates: start: 20060213
  3. EPIRUBICIN [Suspect]
     Dosage: 220 MF
     Dates: start: 20060213

REACTIONS (3)
  - ASTHMA [None]
  - BRONCHITIS ACUTE [None]
  - NEUTROPHIL COUNT ABNORMAL [None]
